FAERS Safety Report 15342218 (Version 5)
Quarter: 2018Q4

REPORT INFORMATION
  Report Type: Spontaneous
  Country: US (occurrence: US)
  Receive Date: 20180902
  Receipt Date: 20181129
  Transmission Date: 20190204
  Serious: No
  Sender: FDA-Public Use
  Company Number: US-JNJFOC-20180818412

PATIENT
  Age: 72 Year
  Sex: Male
  Weight: 69.85 kg

DRUGS (28)
  1. TAMSULOSIN HYDROCHLORIDE. [Concomitant]
     Active Substance: TAMSULOSIN HYDROCHLORIDE
     Indication: URINE FLOW DECREASED
     Dosage: WITH DINNER
     Route: 065
     Dates: start: 2013
  2. AMMONIUM LACTATE. [Concomitant]
     Active Substance: AMMONIUM LACTATE
     Indication: DRY SKIN
     Dosage: AFTER SHOWER
     Route: 065
     Dates: start: 201803
  3. FLAXSEED [Concomitant]
     Active Substance: FLAX SEED
     Route: 065
  4. ZINC GLUCONATE [Concomitant]
     Active Substance: ZINC GLUCONATE
     Route: 065
  5. BIO D3 [Concomitant]
     Route: 065
  6. FENOFIBRATE. [Concomitant]
     Active Substance: FENOFIBRATE
     Indication: BLOOD TRIGLYCERIDES INCREASED
     Route: 065
     Dates: start: 201803
  7. MESALAMINE. [Concomitant]
     Active Substance: MESALAMINE
     Indication: COLITIS ULCERATIVE
     Route: 065
     Dates: start: 201703
  8. ZINC CITRATE [Concomitant]
     Active Substance: ZINC CITRATE
     Route: 065
  9. COQ10 [Concomitant]
     Active Substance: UBIDECARENONE
     Route: 065
  10. AMOXICILLIN. [Concomitant]
     Active Substance: AMOXICILLIN
     Indication: HIP ARTHROPLASTY
     Route: 048
     Dates: start: 1986
  11. VITAMIN B [Concomitant]
     Active Substance: VITAMIN B
     Route: 065
  12. FENOFIBRATE. [Concomitant]
     Active Substance: FENOFIBRATE
     Indication: BLOOD CHOLESTEROL INCREASED
     Route: 065
     Dates: start: 201803
  13. SIMPONI [Suspect]
     Active Substance: GOLIMUMAB
     Indication: COLITIS ULCERATIVE
     Route: 058
  14. CALCIUM MAGNESIUM + VITAMIN D3 [Concomitant]
     Dosage: CA (AS CALCIUM CITRATE) 400 MG, MG (AS MG OXIDE, MG CITRATE) 200 MG VITAMIN D3 160 IU
     Route: 065
  15. POTASSIUM CITRATE. [Concomitant]
     Active Substance: POTASSIUM CITRATE
     Indication: NEPHROLITHIASIS
     Route: 065
     Dates: start: 2011
  16. ALLOPURINOL. [Concomitant]
     Active Substance: ALLOPURINOL
     Indication: GOUT
     Route: 065
     Dates: start: 20180301
  17. CLOBETASOL PROPIONATE. [Concomitant]
     Active Substance: CLOBETASOL PROPIONATE
     Dosage: 1-2 TIMES PER WEEKLY
     Route: 061
     Dates: end: 201803
  18. TURMERIC [Concomitant]
     Active Substance: HERBALS\TURMERIC
     Route: 065
  19. VITAMIN D3 [Concomitant]
     Active Substance: CHOLECALCIFEROL
     Route: 065
  20. FISH OIL [Concomitant]
     Active Substance: FISH OIL
     Route: 065
  21. CLOBETASOL PROPIONATE. [Concomitant]
     Active Substance: CLOBETASOL PROPIONATE
     Dosage: 1-2 TIMES PER DAY
     Route: 061
     Dates: end: 201803
  22. MAGNESIUM [Concomitant]
     Active Substance: MAGNESIUM
     Route: 065
  23. VITAMINE C [Concomitant]
     Active Substance: ASCORBIC ACID
     Route: 065
  24. BORAGE OIL [Concomitant]
     Active Substance: BORAGE OIL
     Route: 065
  25. SIMPONI [Suspect]
     Active Substance: GOLIMUMAB
     Indication: COLITIS ULCERATIVE
     Route: 058
     Dates: start: 20170830
  26. SIMPONI [Suspect]
     Active Substance: GOLIMUMAB
     Indication: COLITIS ULCERATIVE
     Route: 058
     Dates: start: 20170913
  27. CALCIUM [Concomitant]
     Active Substance: CALCIUM
     Route: 065
  28. VITAMINE C [Concomitant]
     Active Substance: ASCORBIC ACID
     Route: 065

REACTIONS (3)
  - Inappropriate schedule of product administration [Unknown]
  - Wrong technique in product usage process [Unknown]
  - Accidental exposure to product [Unknown]

NARRATIVE: CASE EVENT DATE: 20180815
